FAERS Safety Report 6314406-7 (Version None)
Quarter: 2009Q3

REPORT INFORMATION
  Report Type: 
  Country: None (occurrence: None)
  Receive Date: 20090819
  Receipt Date: 20090817
  Transmission Date: 20100115
  Serious: Yes (Life-Threatening, Other)
  Sender: FDA-Public Use
  Company Number: GB-ASTRAZENECA-2009SE08280

PATIENT
  Age: 51 Year
  Sex: Female

DRUGS (2)
  1. PROPOFOL [Suspect]
     Indication: ANAESTHESIA
     Route: 042
     Dates: start: 20080530, end: 20080530
  2. REMIFENTANIL [Concomitant]

REACTIONS (3)
  - AIRWAY COMPLICATION OF ANAESTHESIA [None]
  - DRUG EFFECT DECREASED [None]
  - PREMATURE RECOVERY FROM ANAESTHESIA [None]
